FAERS Safety Report 10384895 (Version 5)
Quarter: 2015Q3

REPORT INFORMATION
  Report Type: Spontaneous
  Country: US (occurrence: US)
  Receive Date: 20140814
  Receipt Date: 20150817
  Transmission Date: 20151125
  Serious: No
  Sender: FDA-Public Use
  Company Number: US-GILEAD-2014-0111851

PATIENT
  Age: 45 Year
  Sex: Female
  Weight: 73.47 kg

DRUGS (5)
  1. LETAIRIS [Suspect]
     Active Substance: AMBRISENTAN
     Indication: PRODUCT USED FOR UNKNOWN INDICATION
     Dosage: 5 MG, QD
     Route: 065
     Dates: start: 20130115
  2. LETAIRIS [Suspect]
     Active Substance: AMBRISENTAN
     Dosage: 5 MG, QD
     Route: 065
     Dates: start: 20120113
  3. REMODULIN [Suspect]
     Active Substance: TREPROSTINIL
     Indication: COR PULMONALE CHRONIC
     Dosage: 0.093 ?G/KG, UNK
     Route: 065
     Dates: start: 20131211
  4. LETAIRIS [Suspect]
     Active Substance: AMBRISENTAN
     Dosage: 5 MG, QD
     Route: 065
     Dates: start: 20110208
  5. REVATIO [Concomitant]
     Active Substance: SILDENAFIL CITRATE

REACTIONS (8)
  - Catheter site haemorrhage [Unknown]
  - Catheter site pruritus [Unknown]
  - Application site irritation [Unknown]
  - Catheter site swelling [Unknown]
  - Catheter site inflammation [Unknown]
  - Catheter site infection [Recovered/Resolved]
  - Catheter site haemorrhage [Recovered/Resolved]
  - Catheter site erythema [Unknown]

NARRATIVE: CASE EVENT DATE: 2014
